FAERS Safety Report 17529186 (Version 1)
Quarter: 2020Q1

REPORT INFORMATION
  Report Type: Spontaneous
  Country: US (occurrence: US)
  Receive Date: 20200312
  Receipt Date: 20200312
  Transmission Date: 20200409
  Serious: No
  Sender: FDA-Public Use
  Company Number: US-BIOGEN-2020BI00848354

PATIENT
  Sex: Female

DRUGS (1)
  1. TECFIDERA [Suspect]
     Active Substance: DIMETHYL FUMARATE
     Indication: MULTIPLE SCLEROSIS
     Route: 065
     Dates: start: 20200208

REACTIONS (6)
  - Lip dry [Unknown]
  - Dry mouth [Unknown]
  - Dry eye [Unknown]
  - Blister [Unknown]
  - Scab [Unknown]
  - Rash vesicular [Unknown]
